FAERS Safety Report 7351214-2 (Version None)
Quarter: 2011Q1

REPORT INFORMATION
  Report Type: 
  Country: None (occurrence: None)
  Receive Date: 20110314
  Receipt Date: 20110304
  Transmission Date: 20110831
  Serious: Yes (Other)
  Sender: FDA-Public Use
  Company Number: US-ASTRAZENECA-2005UW16997

PATIENT
  Age: 71 Year
  Sex: Female
  Weight: 55.8 kg

DRUGS (10)
  1. ZANTAC [Concomitant]
  2. OSTEOMATRIX [Concomitant]
  3. VITAMIN E [Concomitant]
  4. CALCIUM [Concomitant]
  5. ARIMIDEX [Suspect]
     Indication: BREAST CANCER
     Route: 048
     Dates: start: 20051105, end: 20100701
  6. ARIMIDEX [Suspect]
     Dosage: GENERIC
     Route: 048
     Dates: start: 20100701, end: 20110101
  7. HORMONE REPLACEMENT THERAPY [Concomitant]
  8. ALLEVE [Concomitant]
  9. RADIATION [Concomitant]
  10. PREVACID [Concomitant]
     Indication: DYSPEPSIA

REACTIONS (50)
  - HELICOBACTER INFECTION [None]
  - VITAMIN B12 INCREASED [None]
  - VAGINAL INFECTION [None]
  - BONE DENSITY DECREASED [None]
  - DENTAL CARIES [None]
  - DRY MOUTH [None]
  - PANCREATITIS [None]
  - DIZZINESS [None]
  - GASTROOESOPHAGEAL REFLUX DISEASE [None]
  - BREAST TENDERNESS [None]
  - BLADDER DISCOMFORT [None]
  - THROAT IRRITATION [None]
  - BONE PAIN [None]
  - ORAL DISCOMFORT [None]
  - COUGH [None]
  - FEELING OF BODY TEMPERATURE CHANGE [None]
  - WEIGHT DECREASED [None]
  - BURNING SENSATION [None]
  - SINUS CONGESTION [None]
  - IRRITABLE BOWEL SYNDROME [None]
  - MOOD ALTERED [None]
  - AGEUSIA [None]
  - DIARRHOEA [None]
  - FLATULENCE [None]
  - EXERCISE TOLERANCE DECREASED [None]
  - MYALGIA [None]
  - BACK PAIN [None]
  - CARBOHYDRATE TOLERANCE DECREASED [None]
  - OESOPHAGEAL PAIN [None]
  - PRURITUS [None]
  - HEPATIC ENZYME INCREASED [None]
  - DYSGEUSIA [None]
  - SINUSITIS [None]
  - FIBROCYSTIC BREAST DISEASE [None]
  - PAIN [None]
  - HEADACHE [None]
  - FATIGUE [None]
  - ASTHENIA [None]
  - DRY SKIN [None]
  - INFLUENZA [None]
  - SKIN WRINKLING [None]
  - CONSTIPATION [None]
  - NAUSEA [None]
  - ALOPECIA [None]
  - HYPERBILIRUBINAEMIA [None]
  - INSOMNIA [None]
  - DYSPEPSIA [None]
  - PANCREATIC ENZYMES INCREASED [None]
  - BLADDER PAIN [None]
  - DEPRESSION [None]
